FAERS Safety Report 18591990 (Version 2)
Quarter: 2020Q4

REPORT INFORMATION
  Report Type: Spontaneous
  Country: US (occurrence: US)
  Receive Date: 20201208
  Receipt Date: 20201228
  Transmission Date: 20210114
  Serious: Yes (Other)
  Sender: FDA-Public Use
  Company Number: US-MALLINCKRODT-T202005640

PATIENT
  Age: 1 Year
  Sex: Male
  Weight: 12 kg

DRUGS (1)
  1. H.P. ACTHAR [Suspect]
     Active Substance: CORTICOTROPIN
     Indication: EYE MOVEMENT DISORDER
     Dosage: 40 UNITS (0.5 ML), ONCE DAILY
     Route: 030
     Dates: start: 20201202

REACTIONS (4)
  - Middle insomnia [Not Recovered/Not Resolved]
  - SARS-CoV-2 test [Unknown]
  - Pollakiuria [Not Recovered/Not Resolved]
  - Increased appetite [Not Recovered/Not Resolved]

NARRATIVE: CASE EVENT DATE: 202012
